FAERS Safety Report 6540850-9 (Version None)
Quarter: 2010Q1

REPORT INFORMATION
  Report Type: 
  Country: None (occurrence: None)
  Receive Date: 20100118
  Receipt Date: 20100107
  Transmission Date: 20100710
  Serious: Yes (Hospitalization, Other)
  Sender: FDA-Public Use
  Company Number: PHHY2009FR37166

PATIENT
  Age: 72 Year
  Sex: Female

DRUGS (7)
  1. ACLASTA [Suspect]
     Dosage: UNK
     Dates: start: 20090101
  2. STILNOX [Concomitant]
  3. ESCITALOPRAM [Concomitant]
  4. PARACETAMOL [Concomitant]
  5. LYRICA [Concomitant]
  6. BETASERC [Concomitant]
     Dosage: UNK
  7. CACIT [Concomitant]
     Dosage: UNK

REACTIONS (29)
  - ASTHENIA [None]
  - BODY HEIGHT DECREASED [None]
  - CEREBROVASCULAR ACCIDENT [None]
  - CHILLBLAINS [None]
  - COGWHEEL RIGIDITY [None]
  - CYANOSIS [None]
  - DECREASED APPETITE [None]
  - DRY MOUTH [None]
  - ERYTHEMA [None]
  - HAEMORRHAGE [None]
  - HEADACHE [None]
  - HYPERTONIA [None]
  - LIVIDITY [None]
  - LUPUS VASCULITIS [None]
  - LYMPHOCYTIC INFILTRATION [None]
  - MUSCULOSKELETAL PAIN [None]
  - MUSCULOSKELETAL STIFFNESS [None]
  - NECROSIS [None]
  - PAIN IN EXTREMITY [None]
  - PARKINSON'S DISEASE [None]
  - RASH [None]
  - ROTATOR CUFF SYNDROME [None]
  - SIALOADENITIS [None]
  - SJOGREN'S SYNDROME [None]
  - SKIN ATROPHY [None]
  - SKIN FIBROSIS [None]
  - VASCULITIS [None]
  - WEIGHT DECREASED [None]
  - XEROPHTHALMIA [None]
